FAERS Safety Report 11054728 (Version 1)
Quarter: 2015Q2

REPORT INFORMATION
  Report Type: Spontaneous
  Country: US (occurrence: US)
  Receive Date: 20150422
  Receipt Date: 20150422
  Transmission Date: 20150821
  Serious: Yes (Other)
  Sender: FDA-Public Use
  Company Number: US-SA-2015SA050274

PATIENT
  Sex: Female

DRUGS (2)
  1. SOLOSTAR [Concomitant]
     Active Substance: DEVICE
     Indication: DIABETES MELLITUS
  2. LANTUS SOLOSTAR [Suspect]
     Active Substance: INSULIN GLARGINE
     Indication: DIABETES MELLITUS
     Dosage: DOSE:120 UNIT(S)
     Route: 065

REACTIONS (6)
  - Malaise [Unknown]
  - Visual impairment [Unknown]
  - Arthropathy [Unknown]
  - Limb discomfort [Unknown]
  - Incorrect product storage [Unknown]
  - Kidney infection [Unknown]

NARRATIVE: CASE EVENT DATE: 201504
